FAERS Safety Report 7994318-3 (Version None)
Quarter: 2011Q4

REPORT INFORMATION
  Report Type: 
  Country: None (occurrence: None)
  Receive Date: 20111217
  Receipt Date: 20111217
  Transmission Date: 20120403
  Serious: No
  Sender: FDA-Public Use
  Company Number: None

PATIENT
  Age: 50 Year
  Sex: Female

DRUGS (1)
  1. COPAXONE [Suspect]
     Dosage: 20MG DAILY SQ
     Route: 058
     Dates: start: 20110707, end: 20111001

REACTIONS (2)
  - URTICARIA [None]
  - DEPRESSION [None]
